FAERS Safety Report 23778145 (Version 2)
Quarter: 2024Q2

REPORT INFORMATION
  Report Type: Spontaneous
  Country: US (occurrence: US)
  Receive Date: 20240424
  Receipt Date: 20240610
  Transmission Date: 20240715
  Serious: No
  Sender: FDA-Public Use
  Company Number: US-HALEON-2170311

PATIENT
  Age: 3 Year
  Sex: Female

DRUGS (1)
  1. TUMS EXTRA STRENGTH SUGAR-FREE [Suspect]
     Active Substance: CALCIUM CARBONATE
     Indication: Product used for unknown indication

REACTIONS (1)
  - Accidental exposure to product [Unknown]
